FAERS Safety Report 13183140 (Version 1)
Quarter: 2017Q1

REPORT INFORMATION
  Report Type: Spontaneous
  Country: US (occurrence: US)
  Receive Date: 20170203
  Receipt Date: 20170203
  Transmission Date: 20170428
  Serious: No
  Sender: FDA-Public Use
  Company Number: US-TEVA-728743ACC

PATIENT
  Age: 32 Year
  Sex: Female
  Weight: 74.46 kg

DRUGS (2)
  1. BABY ASPIRIN [Concomitant]
     Active Substance: ASPIRIN
  2. PARAGARD T 380A [Suspect]
     Active Substance: COPPER
     Indication: CONTRACEPTION
     Dates: start: 20161206, end: 20161231

REACTIONS (2)
  - Device expulsion [Recovered/Resolved]
  - Dysmenorrhoea [Recovered/Resolved]

NARRATIVE: CASE EVENT DATE: 20161224
